FAERS Safety Report 23193202 (Version 1)
Quarter: 2023Q4

REPORT INFORMATION
  Report Type: Spontaneous
  Country: US (occurrence: None)
  Receive Date: 20231116
  Receipt Date: 20231116
  Transmission Date: 20240110
  Serious: Yes (Other)
  Sender: FDA-Public Use
  Company Number: None

PATIENT
  Age: 71 Year
  Sex: Female
  Weight: 71.55 kg

DRUGS (5)
  1. LEQVIO [Suspect]
     Active Substance: INCLISIRAN SODIUM
     Indication: Blood cholesterol increased
     Dosage: OTHER FREQUENCY : VARIES;?
     Route: 058
     Dates: start: 20231107
  2. XELJANZ [Concomitant]
     Active Substance: TOFACITINIB CITRATE
  3. FOLIC ACID [Concomitant]
     Active Substance: FOLIC ACID
  4. ALIGN [Concomitant]
     Active Substance: BIFIDOBACTERIUM LONGUM SUBSP. INFANTIS
  5. NEXIUM [Concomitant]
     Active Substance: ESOMEPRAZOLE MAGNESIUM

REACTIONS (4)
  - Urinary tract infection [None]
  - Blood urine present [None]
  - White blood cell count increased [None]
  - Influenza like illness [None]

NARRATIVE: CASE EVENT DATE: 20231113
